FAERS Safety Report 20112517 (Version 1)
Quarter: 2021Q4

REPORT INFORMATION
  Report Type: Spontaneous
  Country: US (occurrence: US)
  Receive Date: 20211125
  Receipt Date: 20211125
  Transmission Date: 20220303
  Serious: Yes (Other)
  Sender: FDA-Public Use
  Company Number: US-BTGSP-US-BTGSP-21-0084

PATIENT
  Sex: Male

DRUGS (2)
  1. CROFAB [Suspect]
     Active Substance: CROTALIDAE POLYVALENT IMMUNE FAB (OVINE)
     Indication: Snake bite
     Dosage: 6 VIALS 250 ML/HR
     Route: 065
  2. CROFAB [Suspect]
     Active Substance: CROTALIDAE POLYVALENT IMMUNE FAB (OVINE)
     Dosage: 6 VIALS/250 ML AT 50ML/HR
     Route: 065
     Dates: start: 20210613, end: 20210613

REACTIONS (3)
  - Anaphylactic shock [Recovered/Resolved]
  - Food allergy [Unknown]
  - Urticaria [Unknown]
